FAERS Safety Report 7245897-5 (Version None)
Quarter: 2011Q1

REPORT INFORMATION
  Report Type: 
  Country: None (occurrence: None)
  Receive Date: 20110126
  Receipt Date: 20110114
  Transmission Date: 20110831
  Serious: Yes (Hospitalization)
  Sender: FDA-Public Use
  Company Number: FR-PFIZER INC-2011014365

PATIENT
  Age: 33 Year
  Sex: Female

DRUGS (5)
  1. MEPRONIZINE [Suspect]
     Dosage: 50 TABLETS
     Route: 048
     Dates: start: 20101228, end: 20101228
  2. HYDROXYZINE HCL [Suspect]
     Dosage: 45 TABLETS
     Route: 048
     Dates: start: 20101228, end: 20101228
  3. VALIUM [Suspect]
     Dosage: 14 TABLETS
     Route: 048
     Dates: start: 20101228, end: 20101228
  4. SERESTA [Suspect]
     Dosage: UNK
     Dates: start: 20101228
  5. TERCIAN [Suspect]
     Dosage: 20 TABLETS
     Route: 048
     Dates: start: 20101228, end: 20101228

REACTIONS (2)
  - INTENTIONAL OVERDOSE [None]
  - COMA SCALE ABNORMAL [None]
